FAERS Safety Report 22300960 (Version 1)
Quarter: 2023Q2

REPORT INFORMATION
  Report Type: Spontaneous
  Country: US (occurrence: US)
  Receive Date: 20230509
  Receipt Date: 20230509
  Transmission Date: 20230721
  Serious: No
  Sender: FDA-Public Use
  Company Number: US-SA-SAC20230504000899

PATIENT
  Age: 53 Year
  Sex: Female

DRUGS (19)
  1. DUPIXENT [Suspect]
     Active Substance: DUPILUMAB
     Indication: Asthma
     Dosage: 400 MG, 1X
     Route: 058
     Dates: start: 20230424, end: 20230424
  2. DUPIXENT [Suspect]
     Active Substance: DUPILUMAB
     Dosage: 200 MG, QOW
     Route: 058
  3. CALMAG THINS [Concomitant]
  4. PANTOPRAZOLE SODIUM [Concomitant]
     Active Substance: PANTOPRAZOLE SODIUM
  5. XIIDRA [Concomitant]
     Active Substance: LIFITEGRAST
  6. MELATONIN [Concomitant]
     Active Substance: MELATONIN
  7. NORVASC [Concomitant]
     Active Substance: AMLODIPINE BESYLATE
  8. MOMETASONE FUROATE [Concomitant]
     Active Substance: MOMETASONE FUROATE
  9. MELOXICAM [Concomitant]
     Active Substance: MELOXICAM
  10. ZYRTEC [Concomitant]
     Active Substance: CETIRIZINE HYDROCHLORIDE
  11. ALBUTEROL SULFATE [Concomitant]
     Active Substance: ALBUTEROL SULFATE
  12. SYMBICORT [Concomitant]
     Active Substance: BUDESONIDE\FORMOTEROL FUMARATE DIHYDRATE
  13. CABERGOLINE [Concomitant]
     Active Substance: CABERGOLINE
  14. SINGULAIR [Concomitant]
     Active Substance: MONTELUKAST SODIUM
  15. TOPIRAMATE [Concomitant]
     Active Substance: TOPIRAMATE
  16. ESTRACE [Concomitant]
     Active Substance: ESTRADIOL
  17. SYNTHROID [Concomitant]
     Active Substance: LEVOTHYROXINE SODIUM
  18. VITAMINS NOS [Concomitant]
     Active Substance: VITAMINS
  19. ALBUTEROL SULFATE [Concomitant]
     Active Substance: ALBUTEROL SULFATE

REACTIONS (2)
  - Dizziness [Recovered/Resolved]
  - Vertigo [Recovered/Resolved]

NARRATIVE: CASE EVENT DATE: 20230401
